FAERS Safety Report 6579423-0 (Version None)
Quarter: 2010Q1

REPORT INFORMATION
  Report Type: 
  Country: None (occurrence: None)
  Receive Date: 20100212
  Receipt Date: 20100208
  Transmission Date: 20100710
  Serious: Yes (Other)
  Sender: FDA-Public Use
  Company Number: US-BRISTOL-MYERS SQUIBB COMPANY-13572052

PATIENT
  Age: 57 Year
  Sex: Female
  Weight: 91 kg

DRUGS (8)
  1. ORENCIA [Suspect]
     Indication: RHEUMATOID ARTHRITIS
     Route: 042
  2. DIOVAN [Concomitant]
  3. LASIX [Concomitant]
  4. LEXAPRO [Concomitant]
  5. ZETIA [Concomitant]
  6. PREDNISONE [Concomitant]
  7. ACTONEL [Concomitant]
  8. K-DUR [Concomitant]

REACTIONS (3)
  - BENIGN NEOPLASM OF THYROID GLAND [None]
  - CONFUSIONAL STATE [None]
  - MASS [None]
